FAERS Safety Report 9869637 (Version 3)
Quarter: 2014Q2

REPORT INFORMATION
  Report Type: Spontaneous
  Country: US (occurrence: US)
  Receive Date: 20140205
  Receipt Date: 20140522
  Transmission Date: 20141212
  Serious: Yes (Other)
  Sender: FDA-Public Use
  Company Number: US-BAYER-2014-007479

PATIENT
  Age: 61 Year
  Sex: Male

DRUGS (3)
  1. XOFIGO [Suspect]
     Indication: PROSTATE CANCER METASTATIC
     Dosage: 137 MICROCURIES
     Route: 042
     Dates: start: 20131219, end: 20131219
  2. XOFIGO [Suspect]
     Indication: PROSTATE CANCER METASTATIC
     Dosage: 135MICROURIES
     Route: 042
     Dates: start: 20140116, end: 20140116
  3. XOFIGO [Suspect]
     Indication: PROSTATE CANCER METASTATIC
     Dosage: 136MICROURIES
     Route: 042
     Dates: start: 20140213, end: 20140213

REACTIONS (3)
  - Prostate cancer metastatic [Unknown]
  - Haemoglobin decreased [None]
  - Neutrophil count decreased [None]
